FAERS Safety Report 7794268-1 (Version None)
Quarter: 2011Q4

REPORT INFORMATION
  Report Type: 
  Country: None (occurrence: None)
  Receive Date: 20111004
  Receipt Date: 20110926
  Transmission Date: 20120403
  Serious: Yes (Hospitalization, Other)
  Sender: FDA-Public Use
  Company Number: CA-ASTELLAS-2011EU003614

PATIENT
  Sex: Male

DRUGS (20)
  1. VALGANCICLOVIR [Concomitant]
     Dosage: 450 MG, UNKNOWN/D
     Route: 048
  2. BENADRYL [Concomitant]
     Indication: PROPHYLAXIS
     Dosage: UNK
     Route: 048
     Dates: start: 20040101, end: 20110514
  3. TACROLIMUS [Suspect]
     Indication: LIVER TRANSPLANT
     Dosage: UNK
     Route: 065
  4. TACROLIMUS [Suspect]
     Dosage: 2 MG, UNKNOWN/D
     Route: 048
  5. ZOPICLONE [Concomitant]
     Dosage: 7.5 MG, QHS
     Route: 048
  6. VANCOMYCIN [Concomitant]
     Dosage: 1 G, UID/QD
     Route: 042
  7. TYLENOL-500 [Concomitant]
     Dosage: UNK DF, PRN
     Route: 048
  8. MYCOPHENOLATE MOFETIL [Concomitant]
     Dosage: 1 G, BID
     Route: 048
  9. ZOPICLONE [Concomitant]
     Dosage: 7.5 MG, PRN
     Route: 048
  10. TYLENOL-500 [Concomitant]
     Dosage: UNK DF, Q6 HOURS
     Route: 048
  11. DOMPERIDONE [Concomitant]
     Dosage: 10 MG, TID
     Route: 048
  12. PANTOPRAZOLE SODIUM [Concomitant]
     Indication: PROPHYLAXIS
     Dosage: UNK MG, UNKNOWN/D
     Route: 048
     Dates: start: 20040101, end: 20110514
  13. GRAVOL TAB [Concomitant]
     Dosage: UNK DF, Q6 HOURS
     Route: 048
  14. PREDNISONE [Concomitant]
     Dosage: 20 MG, UNKNOWN/D
     Route: 048
  15. KAYEXALATE [Concomitant]
     Dosage: 15 G, BID
     Route: 048
  16. LASIX [Concomitant]
     Indication: OEDEMA
     Dosage: UNK
     Route: 048
     Dates: start: 20040101, end: 20110514
  17. NADOLOL [Concomitant]
     Indication: OEDEMA
     Dosage: UNK
     Route: 048
     Dates: start: 20040101, end: 20110514
  18. OXYCODONE HCL [Concomitant]
     Dosage: UNK DF, PRN
     Route: 048
  19. GRAVOL TAB [Concomitant]
     Dosage: UNK
     Route: 042
  20. LACTULOSE [Concomitant]
     Indication: ENCEPHALOPATHY
     Dosage: UNK
     Route: 048
     Dates: start: 20040101, end: 20110514

REACTIONS (4)
  - ABDOMINAL ABSCESS [None]
  - PYREXIA [None]
  - CONVULSION [None]
  - POST PROCEDURAL BILE LEAK [None]
